FAERS Safety Report 7516110-6 (Version None)
Quarter: 2011Q2

REPORT INFORMATION
  Report Type: 
  Country: None (occurrence: None)
  Receive Date: 20110601
  Receipt Date: 20110520
  Transmission Date: 20111010
  Serious: Yes (Life-Threatening, Hospitalization, Other)
  Sender: FDA-Public Use
  Company Number: IE-ACTELION-A-CH2011-49109

PATIENT
  Sex: Female
  Weight: 60 kg

DRUGS (1)
  1. TRACLEER [Suspect]
     Indication: SKIN ULCER
     Dosage: 62.5 MG, UNK
     Route: 048
     Dates: start: 20090101, end: 20090101

REACTIONS (1)
  - CARDIAC ARREST [None]
